FAERS Safety Report 9838285 (Version 1)
Quarter: 2013Q4

REPORT INFORMATION
  Report Type: Spontaneous
  Country: US (occurrence: None)
  Receive Date: 20131205
  Receipt Date: 20131205
  Transmission Date: 20140711
  Serious: No
  Sender: FDA-Public Use
  Company Number: 163-POMAL-13101111

PATIENT
  Age: 81 Year
  Sex: 0

DRUGS (1)
  1. POMALYST [Suspect]
     Indication: PLASMA CELL MYELOMA
     Route: 048
     Dates: start: 201303

REACTIONS (3)
  - Platelet disorder [None]
  - Red blood cell count abnormal [None]
  - White blood cell count abnormal [None]
